FAERS Safety Report 21128995 (Version 1)
Quarter: 2022Q3

REPORT INFORMATION
  Report Type: Spontaneous
  Country: KR (occurrence: None)
  Receive Date: 20220725
  Receipt Date: 20220725
  Transmission Date: 20221027
  Serious: Yes (Death, Hospitalization)
  Sender: FDA-Public Use
  Company Number: KR-Eisai Inc (Eisai China)-EC-2022-119837

PATIENT
  Age: 82 Year
  Sex: Male

DRUGS (1)
  1. LENVATINIB [Suspect]
     Active Substance: LENVATINIB
     Indication: Thyroid cancer metastatic
     Route: 048

REACTIONS (1)
  - Interstitial lung disease [Fatal]
